FAERS Safety Report 6869820-8 (Version None)
Quarter: 2010Q3

REPORT INFORMATION
  Report Type: 
  Country: None (occurrence: None)
  Receive Date: 20100722
  Receipt Date: 20080827
  Transmission Date: 20110219
  Serious: No
  Sender: FDA-Public Use
  Company Number: US-PFIZER INC-2008071843

PATIENT
  Sex: Male
  Weight: 77.3 kg

DRUGS (9)
  1. CHANTIX [Suspect]
     Indication: SMOKING CESSATION THERAPY
     Dates: start: 20071101, end: 20080101
  2. NIASPAN [Concomitant]
  3. ACETYLSALICYLIC ACID [Concomitant]
  4. HERBAL NOS/MINERALS NOS [Concomitant]
  5. ANTIBIOTICS [Concomitant]
  6. FOSAMAX [Concomitant]
  7. MULTI-VITAMINS [Concomitant]
  8. IRON [Concomitant]
  9. OMEPRAZOLE [Concomitant]

REACTIONS (1)
  - ABNORMAL DREAMS [None]
